FAERS Safety Report 8885011 (Version 3)
Quarter: 2013Q2

REPORT INFORMATION
  Report Type: Report from Study
  Country: BE (occurrence: BE)
  Receive Date: 20121105
  Receipt Date: 20130418
  Transmission Date: 20140414
  Serious: Yes (Hospitalization)
  Sender: FDA-Public Use
  Company Number: BE-BIOGENIDEC-2012BI049407

PATIENT
  Age: 45 Year
  Sex: Female

DRUGS (8)
  1. TYSABRI [Suspect]
     Indication: RELAPSING-REMITTING MULTIPLE SCLEROSIS
     Route: 042
     Dates: start: 20081120
  2. 4-AMINOPYRIDINE [Concomitant]
     Indication: WALKING DISABILITY
     Route: 048
     Dates: start: 20111010
  3. TRAMADOL [Concomitant]
     Indication: PAIN
     Route: 048
     Dates: start: 20101011
  4. TOVIAZ [Concomitant]
     Indication: MICTURITION URGENCY
     Dates: start: 20091127
  5. TAMSULOSINE [Concomitant]
     Indication: MICTURITION URGENCY
     Dates: start: 20090903
  6. PRETERAX [Concomitant]
     Indication: HYPERTENSION
     Dates: start: 20111010
  7. UROPYRINE [Concomitant]
     Indication: CYSTITIS
     Dates: start: 20120302
  8. MOBIC [Concomitant]
     Indication: MUSCULOSKELETAL PAIN
     Dates: start: 20101206

REACTIONS (1)
  - Gait disturbance [Recovered/Resolved]
